FAERS Safety Report 6812389-4 (Version None)
Quarter: 2010Q2

REPORT INFORMATION
  Report Type: 
  Country: None (occurrence: None)
  Receive Date: 20100628
  Receipt Date: 20100617
  Transmission Date: 20101027
  Serious: Yes (Hospitalization)
  Sender: FDA-Public Use
  Company Number: 014048

PATIENT
  Sex: Female
  Weight: 57.3 kg

DRUGS (12)
  1. CERTOLIZUMAB PEGOL (CERTOLIZUMAB PEGOL) [Suspect]
     Indication: RHEUMATOID ARTHRITIS
     Dosage: TWICE MONTHLY SUBCUTANEOUS
     Route: 058
     Dates: start: 20100316
  2. METHOTREXATE [Concomitant]
  3. METHYLPREDNISOLONE [Concomitant]
  4. CELECOXIB [Concomitant]
  5. ACETAMINOPHEN [Concomitant]
  6. FOLIC ACID [Concomitant]
  7. JOINTCARE [Concomitant]
  8. BENPROPERINE [Concomitant]
  9. BROMHEXINE [Concomitant]
  10. AUGMENTIN '125' [Concomitant]
  11. LEVOCETIRIZINE DIHYDROCHOLORIDE [Concomitant]
  12. FERROUS SULFATE [Concomitant]

REACTIONS (6)
  - BLOOD PRESSURE SYSTOLIC INCREASED [None]
  - BRONCHITIS [None]
  - DIZZINESS [None]
  - GASTRITIS [None]
  - NAUSEA [None]
  - VOMITING [None]
